FAERS Safety Report 7281770-4 (Version None)
Quarter: 2011Q1

REPORT INFORMATION
  Report Type: 
  Country: None (occurrence: None)
  Receive Date: 20110208
  Receipt Date: 20100430
  Transmission Date: 20110831
  Serious: No
  Sender: FDA-Public Use
  Company Number: US-PFIZER INC-2010048611

PATIENT
  Sex: Male
  Weight: 104 kg

DRUGS (4)
  1. TERAZOSIN [Concomitant]
     Indication: HYPERTENSION
     Dosage: 1 MG, 1X/DAY
     Route: 048
  2. DILANTIN [Concomitant]
     Indication: CONVULSION
     Dosage: 300 MG, 2X/DAY
     Route: 048
     Dates: start: 20081001
  3. ATENOLOL [Concomitant]
     Indication: HYPERTENSION
     Dosage: 25 MG, 2X/DAY
     Route: 048
  4. SUTENT [Suspect]
     Indication: RENAL CANCER STAGE IV
     Dosage: 50 MG, 1X/DAY
     Route: 048
     Dates: start: 20100407

REACTIONS (1)
  - PAIN [None]
